FAERS Safety Report 6066221-X (Version None)
Quarter: 2009Q1

REPORT INFORMATION
  Report Type: 
  Country: None (occurrence: None)
  Receive Date: 20090130
  Receipt Date: 20090119
  Transmission Date: 20090719
  Serious: Yes (Hospitalization)
  Sender: FDA-Public Use
  Company Number: 2009AL000491

PATIENT
  Sex: Female

DRUGS (1)
  1. FEVERALL [Suspect]

REACTIONS (4)
  - ABDOMINAL PAIN UPPER [None]
  - JAUNDICE [None]
  - LIVER DISORDER [None]
  - NAUSEA [None]
